FAERS Safety Report 7764248-0 (Version None)
Quarter: 2011Q3

REPORT INFORMATION
  Report Type: 
  Country: None (occurrence: None)
  Receive Date: 20110921
  Receipt Date: 20110915
  Transmission Date: 20111222
  Serious: Yes (Death)
  Sender: FDA-Public Use
  Company Number: DE-ASTELLAS-2011EU001789

PATIENT
  Sex: Female
  Weight: 95 kg

DRUGS (7)
  1. BLINDED MICAFUNGIN INJECTION [Suspect]
     Indication: ABDOMINAL INFECTION
     Dosage: UNK MG, UID/QD
     Route: 042
     Dates: start: 20110401, end: 20110404
  2. HEPARIN [Concomitant]
     Indication: ANTICOAGULANT THERAPY
     Dosage: UNK
     Route: 065
     Dates: start: 20110401, end: 20110405
  3. FUROSEMIDE [Concomitant]
     Indication: RENAL FAILURE
     Dosage: UNK
     Route: 065
     Dates: start: 20110401, end: 20110402
  4. MIDAZOLAM HCL [Concomitant]
     Indication: SEDATION
     Dosage: UNK
     Route: 065
     Dates: start: 20110404, end: 20110405
  5. NORADRENALIN [Concomitant]
     Indication: SEPTIC SHOCK
     Dosage: UNK
     Route: 065
     Dates: start: 20110331, end: 20110405
  6. PROPOFOL [Concomitant]
     Indication: SEDATION
     Dosage: UNK
     Route: 065
     Dates: start: 20110331, end: 20110402
  7. INSULINE [Concomitant]
     Indication: HYPERGLYCAEMIA
     Dosage: UNK
     Route: 065
     Dates: start: 20110401, end: 20110405

REACTIONS (2)
  - MULTI-ORGAN FAILURE [None]
  - SEPTIC SHOCK [None]
